FAERS Safety Report 24662723 (Version 1)
Quarter: 2024Q4

REPORT INFORMATION
  Report Type: Spontaneous
  Country: KE (occurrence: KE)
  Receive Date: 20241126
  Receipt Date: 20241126
  Transmission Date: 20250114
  Serious: Yes (Hospitalization, Other)
  Sender: NOVO NORDISK
  Company Number: KE-NOVOPROD-1320467

PATIENT
  Age: 56 Year
  Sex: Female

DRUGS (1)
  1. INSULIN HUMAN [Suspect]
     Active Substance: INSULIN HUMAN
     Indication: Product used for unknown indication
     Dosage: 36 IU, QD (24 UNITS IN MORNING AND 12 IN EVENING)
     Dates: start: 20240718, end: 20241031

REACTIONS (2)
  - Sepsis [Not Recovered/Not Resolved]
  - Renal failure [Unknown]
